FAERS Safety Report 13005525 (Version 2)
Quarter: 2017Q2

REPORT INFORMATION
  Report Type: Spontaneous
  Country: US (occurrence: US)
  Receive Date: 20161207
  Receipt Date: 20170411
  Transmission Date: 20170830
  Serious: No
  Sender: FDA-Public Use
  Company Number: US-JNJFOC-20161113607

PATIENT
  Age: 28 Year
  Sex: Female
  Weight: 83.01 kg

DRUGS (4)
  1. UCERIS [Concomitant]
     Active Substance: BUDESONIDE
     Indication: COLITIS ULCERATIVE
     Route: 048
     Dates: start: 20161102
  2. ORTHO TRI CYCLEN [Concomitant]
     Active Substance: ETHINYL ESTRADIOL\NORGESTIMATE
     Indication: CONTRACEPTION
     Route: 048
  3. SIMPONI [Suspect]
     Active Substance: GOLIMUMAB
     Indication: COLITIS ULCERATIVE
     Route: 058
     Dates: start: 201604
  4. SIMPONI [Suspect]
     Active Substance: GOLIMUMAB
     Indication: COLITIS ULCERATIVE
     Route: 058
     Dates: start: 201608

REACTIONS (6)
  - Colitis ulcerative [Not Recovered/Not Resolved]
  - Drug dose omission [Unknown]
  - Off label use [Unknown]
  - Malaise [Not Recovered/Not Resolved]
  - Device malfunction [Unknown]
  - Incorrect dose administered [Unknown]

NARRATIVE: CASE EVENT DATE: 201608
